FAERS Safety Report 4302186-6 (Version None)
Quarter: 2004Q1

REPORT INFORMATION
  Report Type: 
  Country: None (occurrence: None)
  Receive Date: 20040220
  Receipt Date: 20040210
  Transmission Date: 20041129
  Serious: Yes (Hospitalization, Other)
  Sender: FDA-Public Use
  Company Number: 2004005680

PATIENT
  Age: 1 Month
  Sex: Female
  Weight: 3 kg

DRUGS (1)
  1. ZITHROMAX [Suspect]
     Indication: RESPIRATORY TRACT INFECTION
     Dosage: 39 MG (DAILY), ORAL
     Route: 048
     Dates: start: 20030101

REACTIONS (3)
  - GASTRITIS HAEMORRHAGIC [None]
  - HAEMATEMESIS [None]
  - VOMITING [None]
